FAERS Safety Report 20031576 (Version 1)
Quarter: 2021Q4

REPORT INFORMATION
  Report Type: Spontaneous
  Country: FR (occurrence: FR)
  Receive Date: 20211103
  Receipt Date: 20211103
  Transmission Date: 20220303
  Serious: Yes (Hospitalization)
  Sender: FDA-Public Use
  Company Number: FR-ABBVIE-21K-056-4141656-00

PATIENT
  Age: 28 Year
  Sex: Male
  Weight: 90 kg

DRUGS (7)
  1. DEPAKOTE [Suspect]
     Active Substance: DIVALPROEX SODIUM
     Indication: Personality disorder
     Route: 048
     Dates: start: 20190704, end: 20190730
  2. IMOVANE [Suspect]
     Active Substance: ZOPICLONE
     Indication: Behaviour disorder
     Dosage: PRN, IF NEEDED 1 EVENING
     Route: 048
     Dates: start: 20190215
  3. CLOZAPINE [Suspect]
     Active Substance: CLOZAPINE
     Indication: Impulse-control disorder
     Route: 048
     Dates: start: 20180117, end: 20190730
  4. VALPROMIDE [Suspect]
     Active Substance: VALPROMIDE
     Indication: Personality disorder
     Route: 048
     Dates: start: 2017, end: 20190703
  5. SERTRALINE [Suspect]
     Active Substance: SERTRALINE HYDROCHLORIDE
     Indication: Libido disorder
     Route: 048
     Dates: start: 20190629
  6. LOXAPINE [Suspect]
     Active Substance: LOXAPINE
     Indication: Impulse-control disorder
     Dosage: PRN
     Route: 048
     Dates: start: 20170802
  7. LEVOTHYROXINE [Concomitant]
     Active Substance: LEVOTHYROXINE
     Indication: Product used for unknown indication

REACTIONS (3)
  - Seizure [Recovered/Resolved]
  - Loss of consciousness [Recovered/Resolved]
  - Encephalopathy [Recovered/Resolved]

NARRATIVE: CASE EVENT DATE: 20190729
